FAERS Safety Report 9299394 (Version 2)
Quarter: 2013Q4

REPORT INFORMATION
  Report Type: Spontaneous
  Country: US (occurrence: US)
  Receive Date: 20130520
  Receipt Date: 20131111
  Transmission Date: 20140711
  Serious: Yes (Hospitalization)
  Sender: FDA-Public Use
  Company Number: US-B.I. PHARMACEUTICALS,INC./RIDGEFIELD-2013-BI-13938BP

PATIENT
  Sex: Male
  Weight: 140.61 kg

DRUGS (6)
  1. PRADAXA [Suspect]
     Indication: ANTICOAGULANT THERAPY
     Dosage: 150 MG
     Dates: start: 20110520, end: 20110808
  2. PRADAXA [Suspect]
     Indication: ATRIAL FIBRILLATION
  3. ALLOPURINOL [Concomitant]
     Indication: GOUT
     Dosage: 400 MG
  4. COREG [Concomitant]
     Dosage: 100 MG
  5. SOTALOL [Concomitant]
     Dosage: 240 MG
  6. COLCHICINE [Concomitant]
     Indication: GOUT
     Dosage: 0.6 MG

REACTIONS (4)
  - Gastrointestinal haemorrhage [Unknown]
  - Anaemia [Unknown]
  - Atrial fibrillation [Recovered/Resolved]
  - Gout [Unknown]
